FAERS Safety Report 10246633 (Version 3)
Quarter: 2019Q2

REPORT INFORMATION
  Report Type: Spontaneous
  Country: FR (occurrence: FR)
  Receive Date: 20140619
  Receipt Date: 20190614
  Transmission Date: 20190711
  Serious: Yes (Death)
  Sender: FDA-Public Use
  Company Number: FR-ASTRAZENECA-2014SE44732

PATIENT
  Age: 53 Year
  Sex: Male

DRUGS (11)
  1. NOVONORM [Suspect]
     Active Substance: REPAGLINIDE
     Indication: PRODUCT USED FOR UNKNOWN INDICATION
     Dosage: 2.0MG ONCE/SINGLE ADMINISTRATION
     Route: 048
     Dates: start: 20140530, end: 20140530
  2. AVLOCARDYL [Concomitant]
     Active Substance: PROPRANOLOL HYDROCHLORIDE
     Dates: start: 20140527, end: 20140527
  3. ATACAND [Suspect]
     Active Substance: CANDESARTAN CILEXETIL
     Indication: PRODUCT USED FOR UNKNOWN INDICATION
     Dosage: 16.0MG ONCE/SINGLE ADMINISTRATION
     Route: 048
     Dates: start: 20140530, end: 20140530
  4. PAROXETINE. [Concomitant]
     Active Substance: PAROXETINE
     Dosage: 20.0MG ONCE/SINGLE ADMINISTRATION
     Route: 065
     Dates: start: 20140530, end: 20140530
  5. DUPHALAC [Concomitant]
     Active Substance: LACTULOSE
  6. ISOPTINE [Suspect]
     Active Substance: VERAPAMIL HYDROCHLORIDE
     Indication: PRODUCT USED FOR UNKNOWN INDICATION
     Dosage: 240.0MG ONCE/SINGLE ADMINISTRATION
     Route: 048
     Dates: start: 20140530, end: 20140530
  7. VITAMIN B1 B6 [Concomitant]
  8. DIFFU K [Concomitant]
     Active Substance: POTASSIUM CHLORIDE
     Dosage: 1.0DF ONCE/SINGLE ADMINISTRATION
     Route: 065
     Dates: start: 20140530, end: 20140530
  9. EUPRESSYL [Suspect]
     Active Substance: URAPIDIL
     Indication: PRODUCT USED FOR UNKNOWN INDICATION
     Dosage: 90.0MG ONCE/SINGLE ADMINISTRATION
     Route: 048
     Dates: start: 20140530, end: 20140530
  10. HYDROCORTISONE. [Concomitant]
     Active Substance: HYDROCORTISONE
     Dosage: 15.0MG ONCE/SINGLE ADMINISTRATION
     Route: 065
     Dates: start: 20140530, end: 20140530
  11. AVLOCARDYL [Concomitant]
     Active Substance: PROPRANOLOL HYDROCHLORIDE
     Dates: start: 20140528, end: 20140529

REACTIONS (4)
  - Bradycardia [Fatal]
  - Hypotension [Fatal]
  - Hypoglycaemia [Fatal]
  - Wrong product administered [Fatal]

NARRATIVE: CASE EVENT DATE: 20140530
